FAERS Safety Report 15337594 (Version 1)
Quarter: 2018Q3

REPORT INFORMATION
  Report Type: Spontaneous
  Country: US (occurrence: US)
  Receive Date: 20180831
  Receipt Date: 20180831
  Transmission Date: 20181010
  Serious: No
  Sender: FDA-Public Use
  Company Number: US-PFIZER INC-2018350918

PATIENT
  Age: 77 Year
  Sex: Male

DRUGS (1)
  1. SUTENT [Suspect]
     Active Substance: SUNITINIB MALATE
     Dosage: 12.5 MG, CYCLIC
     Route: 048
     Dates: start: 20180801, end: 20180828

REACTIONS (3)
  - Fatigue [Unknown]
  - Drug intolerance [Unknown]
  - Mobility decreased [Unknown]
